FAERS Safety Report 7497478-6 (Version None)
Quarter: 2011Q2

REPORT INFORMATION
  Report Type: 
  Country: None (occurrence: None)
  Receive Date: 20110523
  Receipt Date: 20110511
  Transmission Date: 20111010
  Serious: Yes (Hospitalization)
  Sender: FDA-Public Use
  Company Number: US-ELI_LILLY_AND_COMPANY-US201103007152

PATIENT
  Sex: Female

DRUGS (2)
  1. FORTEO [Suspect]
     Indication: OSTEOPOROSIS
     Dosage: 20 UG, QD
     Dates: start: 20110314
  2. FORTEO [Suspect]
     Dosage: 20 UG, QD

REACTIONS (6)
  - SECRETION DISCHARGE [None]
  - GAIT DISTURBANCE [None]
  - BLISTER [None]
  - PAIN IN EXTREMITY [None]
  - WOUND [None]
  - ERYTHEMA [None]
